FAERS Safety Report 5385919-X (Version None)
Quarter: 2007Q3

REPORT INFORMATION
  Report Type: 
  Country: None (occurrence: None)
  Receive Date: 20070712
  Receipt Date: 20070705
  Transmission Date: 20080115
  Serious: Yes (Death, Other)
  Sender: FDA-Public Use
  Company Number: JP-ABBOTT-02P-087-0192968-00

PATIENT
  Sex: Male

DRUGS (7)
  1. KALETRA [Suspect]
     Indication: HIV INFECTION
     Route: 048
     Dates: start: 20010917, end: 20060626
  2. ZALCITABINE [Suspect]
     Indication: HIV INFECTION
     Route: 048
     Dates: start: 20010401, end: 20010917
  3. LAMIVUDINE [Suspect]
     Indication: HIV INFECTION
     Route: 048
     Dates: start: 20011018, end: 20060626
  4. STAVUDINE [Suspect]
     Indication: HIV INFECTION
     Route: 048
     Dates: start: 20010401, end: 20060626
  5. NELFINAVIR [Suspect]
     Indication: HIV INFECTION
     Route: 048
     Dates: start: 20010401, end: 20010917
  6. DIDANOSINE [Concomitant]
     Indication: HIV INFECTION
     Route: 048
     Dates: start: 20010917, end: 20011018
  7. RURIOCTOCOG ALFA [Concomitant]
     Indication: HAEMOPHILIA
     Route: 042
     Dates: start: 20010401, end: 20060626

REACTIONS (3)
  - DIARRHOEA [None]
  - GASTROINTESTINAL HAEMORRHAGE [None]
  - PLATELET COUNT DECREASED [None]
